FAERS Safety Report 24556131 (Version 3)
Quarter: 2025Q1

REPORT INFORMATION
  Report Type: Report from Study
  Country: CN (occurrence: CN)
  Receive Date: 20241028
  Receipt Date: 20250225
  Transmission Date: 20250408
  Serious: Yes (Other)
  Sender: ROCHE
  Company Number: CN-ROCHE-10000111119

PATIENT
  Age: 79 Year
  Sex: Female

DRUGS (1)
  1. COLUMVI [Suspect]
     Active Substance: GLOFITAMAB-GXBM
     Indication: Diffuse large B-cell lymphoma
     Route: 042
     Dates: start: 20240722

REACTIONS (3)
  - Cerebral infarction [Unknown]
  - Cytokine release syndrome [Unknown]
  - Movement disorder [Unknown]
